APPROVED DRUG PRODUCT: HYDROCORTISONE VALERATE
Active Ingredient: HYDROCORTISONE VALERATE
Strength: 0.2%
Dosage Form/Route: OINTMENT;TOPICAL
Application: A211750 | Product #001
Applicant: GLENMARK PHARMACEUTICALS LTD
Approved: Dec 14, 2018 | RLD: No | RS: No | Type: DISCN